FAERS Safety Report 11878003 (Version 1)
Quarter: 2015Q4

REPORT INFORMATION
  Report Type: Spontaneous
  Country: GR (occurrence: GR)
  Receive Date: 20151230
  Receipt Date: 20151230
  Transmission Date: 20160305
  Serious: Yes (Other)
  Sender: FDA-Public Use
  Company Number: GR-ACTELION-A-CH2015-129136

PATIENT
  Age: 57 Year
  Sex: Female

DRUGS (7)
  1. OPSUMIT [Suspect]
     Active Substance: MACITENTAN
     Indication: PULMONARY ARTERIAL HYPERTENSION
     Dosage: 10 MG, OD
     Route: 048
     Dates: start: 20151001
  2. CANDESARTAN [Concomitant]
     Active Substance: CANDESARTAN
  3. RIVAROXABAN [Concomitant]
     Active Substance: RIVAROXABAN
     Dosage: 20 UNK, UNK
  4. BISOPROLOL [Concomitant]
     Active Substance: BISOPROLOL
  5. EPLERENONE. [Concomitant]
     Active Substance: EPLERENONE
  6. FUROSEMIDE. [Concomitant]
     Active Substance: FUROSEMIDE
  7. PANTOPRAZOLE [Concomitant]
     Active Substance: PANTOPRAZOLE SODIUM
     Dosage: 40 UNK, UNK

REACTIONS (2)
  - Pleural effusion [Unknown]
  - Pyrexia [Not Recovered/Not Resolved]

NARRATIVE: CASE EVENT DATE: 201512
